FAERS Safety Report 14719422 (Version 21)
Quarter: 2021Q4

REPORT INFORMATION
  Report Type: Other
  Country: DE (occurrence: None)
  Receive Date: 20180405
  Receipt Date: 20211215
  Transmission Date: 20220304
  Serious: Yes (Hospitalization, Other)
  Sender: FDA-Public Use
  Company Number: DE-ROCHE-2102569

PATIENT
  Sex: Female

DRUGS (10)
  1. OCREVUS [Suspect]
     Active Substance: OCRELIZUMAB
     Indication: Relapsing-remitting multiple sclerosis
     Route: 042
     Dates: start: 20180315, end: 20180315
  2. OCREVUS [Suspect]
     Active Substance: OCRELIZUMAB
     Route: 042
     Dates: start: 20180323
  3. OCREVUS [Suspect]
     Active Substance: OCRELIZUMAB
     Route: 042
     Dates: start: 20181004
  4. OCREVUS [Suspect]
     Active Substance: OCRELIZUMAB
     Dosage: DATE OF TREATMENT: 17/OCT/2019
     Route: 042
     Dates: start: 20190404
  5. OCREVUS [Suspect]
     Active Substance: OCRELIZUMAB
     Route: 042
     Dates: start: 20200618
  6. OCREVUS [Suspect]
     Active Substance: OCRELIZUMAB
     Route: 042
     Dates: start: 20191017
  7. CORTISONE [Concomitant]
     Active Substance: CORTISONE
     Indication: Muscle spasms
  8. BACLOFEN [Concomitant]
     Active Substance: BACLOFEN
     Indication: Muscle spasms
  9. DALFAMPRIDINE [Concomitant]
     Active Substance: DALFAMPRIDINE
  10. PANTOPRAZOLE SODIUM [Concomitant]
     Active Substance: PANTOPRAZOLE SODIUM

REACTIONS (27)
  - Multiple sclerosis relapse [Unknown]
  - Renal disorder [Recovered/Resolved]
  - Nephrolithiasis [Unknown]
  - Headache [Recovered/Resolved]
  - Genital herpes [Not Recovered/Not Resolved]
  - Cough [Recovered/Resolved]
  - Ear pain [Recovered/Resolved]
  - Haemorrhage [Unknown]
  - Blood test abnormal [Recovered/Resolved]
  - Fatigue [Recovering/Resolving]
  - Myalgia [Not Recovered/Not Resolved]
  - Arthralgia [Not Recovered/Not Resolved]
  - Hypoaesthesia oral [Recovered/Resolved]
  - Muscle twitching [Recovered/Resolved]
  - Nasopharyngitis [Recovered/Resolved]
  - Skin lesion [Recovered/Resolved]
  - Alopecia [Recovered/Resolved]
  - Cardiovascular disorder [Recovered/Resolved]
  - Pain in extremity [Recovered/Resolved]
  - Dizziness [Recovered/Resolved]
  - Cyst [Recovered/Resolved]
  - Balance disorder [Recovered/Resolved]
  - Influenza like illness [Recovered/Resolved]
  - Urinary incontinence [Not Recovered/Not Resolved]
  - Chills [Recovered/Resolved]
  - Throat irritation [Recovered/Resolved]
  - Fatigue [Recovered/Resolved]

NARRATIVE: CASE EVENT DATE: 20180315
